FAERS Safety Report 7309477-5 (Version None)
Quarter: 2011Q1

REPORT INFORMATION
  Report Type: 
  Country: None (occurrence: None)
  Receive Date: 20110223
  Receipt Date: 20110127
  Transmission Date: 20110831
  Serious: No
  Sender: FDA-Public Use
  Company Number: US-B.I. PHARMACEUTICALS,INC./RIDGEFIELD-2011-BP-02917BP

PATIENT
  Sex: Female

DRUGS (2)
  1. CELLCEPT [Concomitant]
     Indication: MYASTHENIA GRAVIS
     Dates: start: 20101101
  2. PRADAXA [Suspect]
     Indication: ATRIAL FIBRILLATION
     Dosage: 300 MG
     Route: 048
     Dates: start: 20101201

REACTIONS (1)
  - ARTHRALGIA [None]
